FAERS Safety Report 9767332 (Version 2)
Quarter: 2013Q4

REPORT INFORMATION
  Report Type: Spontaneous
  Country: US (occurrence: US)
  Receive Date: 20131217
  Receipt Date: 20131226
  Transmission Date: 20140711
  Serious: No
  Sender: FDA-Public Use
  Company Number: US-009507513-1312USA007222

PATIENT
  Age: 84 Year
  Sex: Female

DRUGS (1)
  1. OXYTROL FOR WOMEN [Suspect]
     Indication: MICTURITION URGENCY
     Dosage: 1 DF, Q4D
     Route: 062
     Dates: start: 20130916, end: 201311

REACTIONS (3)
  - Rash erythematous [Unknown]
  - Pruritus [Recovered/Resolved]
  - Dry skin [Recovered/Resolved]
